FAERS Safety Report 9672252 (Version 3)
Quarter: 2013Q4

REPORT INFORMATION
  Report Type: Spontaneous
  Country: US (occurrence: US)
  Receive Date: 20131106
  Receipt Date: 20131118
  Transmission Date: 20140711
  Serious: Yes (Life-Threatening, Disabling, Other)
  Sender: FDA-Public Use
  Company Number: US-BAXTER-2013BAX043463

PATIENT
  Age: 60 Year
  Sex: Female
  Weight: 68.1 kg

DRUGS (6)
  1. 0.9% SODIUM CHLORIDE INJECTION [Suspect]
     Indication: CATHETER MANAGEMENT
     Dosage: 8-10 CC FLUSH
     Route: 042
     Dates: start: 20131025, end: 20131025
  2. 0.9% SODIUM CHLORIDE INJECTION [Suspect]
     Dosage: 8-10 CC
     Route: 042
     Dates: start: 20131028, end: 20131028
  3. FLUDEOXYGLUCOSE (18F) [Suspect]
     Indication: POSITRON EMISSION TOMOGRAM
     Dosage: 13.4 MCI
     Route: 042
     Dates: start: 20131025, end: 20131025
  4. FLUDEOXYGLUCOSE (18F) [Suspect]
     Indication: SCAN
     Dosage: 13.8 MCI
     Route: 042
     Dates: start: 20131028, end: 20131028
  5. FLUDEOXYGLUCOSE (18F) [Suspect]
     Indication: MALIGNANT MELANOMA
  6. FLUDEOXYGLUCOSE (18F) [Suspect]
     Indication: OVARIAN MASS

REACTIONS (8)
  - Blood glucose decreased [Recovered/Resolved]
  - Blood glucose decreased [Recovered/Resolved]
  - Incoherent [Recovered/Resolved]
  - Hyperhidrosis [Recovered/Resolved]
  - Communication disorder [Recovered/Resolved]
  - Pallor [Recovered/Resolved]
  - Asthenia [Recovering/Resolving]
  - Malaise [Recovered/Resolved]
